FAERS Safety Report 6265920-4 (Version None)
Quarter: 2009Q3

REPORT INFORMATION
  Report Type: 
  Country: None (occurrence: None)
  Receive Date: 20090709
  Receipt Date: 20090709
  Transmission Date: 20100115
  Serious: Yes (Other)
  Sender: FDA-Public Use
  Company Number: None

PATIENT
  Age: 47 Year
  Sex: Male
  Weight: 97.5 kg

DRUGS (2)
  1. NALBUPHINE [Suspect]
     Indication: PAIN
  2. METHADONE HCL [Suspect]

REACTIONS (5)
  - CHILLS [None]
  - DRUG INTERACTION [None]
  - DRUG WITHDRAWAL SYNDROME [None]
  - HYPERHIDROSIS [None]
  - VOMITING [None]
